FAERS Safety Report 5307502-4 (Version None)
Quarter: 2007Q2

REPORT INFORMATION
  Report Type: 
  Country: None (occurrence: None)
  Receive Date: 20070425
  Receipt Date: 20070412
  Transmission Date: 20071010
  Serious: Yes (Other)
  Sender: FDA-Public Use
  Company Number: US-ELI_LILLY_AND_COMPANY-US200704003113

PATIENT
  Age: 78 Year
  Sex: Female

DRUGS (3)
  1. EVISTA [Suspect]
     Route: 048
     Dates: start: 20020701
  2. DYAZIDE [Concomitant]
  3. EYE DROPS [Concomitant]
     Route: 047

REACTIONS (1)
  - ENDOMETRIAL CANCER STAGE II [None]
